FAERS Safety Report 17587559 (Version 1)
Quarter: 2020Q1

REPORT INFORMATION
  Report Type: Spontaneous
  Country: PA (occurrence: PA)
  Receive Date: 20200326
  Receipt Date: 20200326
  Transmission Date: 20200409
  Serious: Yes (Death, Other)
  Sender: FDA-Public Use
  Company Number: NVSC2019PA001547

PATIENT
  Age: 60 Year
  Sex: Female

DRUGS (1)
  1. LETROZOLE. [Suspect]
     Active Substance: LETROZOLE
     Indication: BREAST CANCER METASTATIC
     Dosage: UNK
     Route: 065

REACTIONS (7)
  - Malignant neoplasm progression [Fatal]
  - Metastasis [Unknown]
  - Breast cancer metastatic [Fatal]
  - Metastases to bone [Unknown]
  - Metastases to liver [Fatal]
  - Metastases to lymph nodes [Fatal]
  - Hepatic failure [Fatal]

NARRATIVE: CASE EVENT DATE: 201402
